FAERS Safety Report 5121715-6 (Version None)
Quarter: 2006Q4

REPORT INFORMATION
  Report Type: 
  Country: None (occurrence: None)
  Receive Date: 20061006
  Receipt Date: 20060929
  Transmission Date: 20070319
  Serious: Yes (Life-Threatening)
  Sender: FDA-Public Use
  Company Number: GB-AVENTIS-200620282GDDC

PATIENT
  Sex: Female

DRUGS (1)
  1. FLAGYL [Suspect]

REACTIONS (1)
  - CONVULSION [None]
